FAERS Safety Report 19879886 (Version 1)
Quarter: 2021Q3

REPORT INFORMATION
  Report Type: Spontaneous
  Country: US (occurrence: US)
  Receive Date: 20210924
  Receipt Date: 20210924
  Transmission Date: 20211014
  Serious: Yes (Hospitalization)
  Sender: FDA-Public Use
  Company Number: US-ASTRAZENECA-2021A733373

PATIENT
  Sex: Female
  Weight: 108.9 kg

DRUGS (3)
  1. BYDUREON BCISE [Suspect]
     Active Substance: EXENATIDE
     Indication: TYPE 2 DIABETES MELLITUS
     Route: 065
     Dates: start: 2021
  2. BYETTA [Suspect]
     Active Substance: EXENATIDE
     Route: 065
  3. BYDUREON [Suspect]
     Active Substance: EXENATIDE
     Route: 065

REACTIONS (4)
  - Visual impairment [Unknown]
  - Body height decreased [Unknown]
  - Fall [Unknown]
  - Incorrect dose administered [Unknown]
